FAERS Safety Report 8711334 (Version 5)
Quarter: 2013Q1

REPORT INFORMATION
  Report Type: Spontaneous
  Country: GB (occurrence: GB)
  Receive Date: 20120807
  Receipt Date: 20130129
  Transmission Date: 20140127
  Serious: Yes (Other)
  Sender: FDA-Public Use
  Company Number: GB-MYLANLABS-2012S1016635

PATIENT
  Age: 39 Year
  Sex: Female

DRUGS (3)
  1. VENLAFAXINE [Suspect]
     Indication: DEPRESSION
     Route: 048
     Dates: start: 201011
  2. DEPAKOTE [Concomitant]
     Indication: BIPOLAR DISORDER
     Dates: start: 201103, end: 201204
  3. LITHIUM [Concomitant]
     Indication: BIPOLAR DISORDER
     Dates: start: 201001

REACTIONS (1)
  - Urinary tract infection [Not Recovered/Not Resolved]
